FAERS Safety Report 19053072 (Version 1)
Quarter: 2021Q1

REPORT INFORMATION
  Report Type: Spontaneous
  Country: US (occurrence: US)
  Receive Date: 20210324
  Receipt Date: 20210324
  Transmission Date: 20210420
  Serious: No
  Sender: FDA-Public Use
  Company Number: US-BRECKENRIDGE PHARMACEUTICAL, INC.-2108390

PATIENT
  Age: 79 Year
  Sex: Male
  Weight: 77.27 kg

DRUGS (6)
  1. ATORVASTATIN CALCIUM. [Concomitant]
     Active Substance: ATORVASTATIN CALCIUM
  2. DHEA [Concomitant]
     Active Substance: PRASTERONE
  3. LISINOPRIL. [Concomitant]
     Active Substance: LISINOPRIL
  4. ALPRAZOLAM. [Suspect]
     Active Substance: ALPRAZOLAM
     Indication: INSOMNIA
     Route: 048
  5. ASPIRIN. [Concomitant]
     Active Substance: ASPIRIN
  6. ZINC. [Concomitant]
     Active Substance: ZINC

REACTIONS (7)
  - Visual impairment [None]
  - Dizziness [None]
  - Weight decreased [None]
  - Sleep disorder [None]
  - Dysstasia [None]
  - Dyspnoea [None]
  - Therapeutic product ineffective [None]
